FAERS Safety Report 14735373 (Version 1)
Quarter: 2018Q2

REPORT INFORMATION
  Report Type: Spontaneous
  Country: US (occurrence: US)
  Receive Date: 20180403
  Receipt Date: 20180403
  Transmission Date: 20180711
  Serious: No
  Sender: FDA-Public Use
  Company Number: None

PATIENT
  Age: 26 Year
  Sex: Female
  Weight: 82.7 kg

DRUGS (1)
  1. BAUSCH + LOMB ADVANCED EYE RELIEF EYE WASH [Suspect]
     Active Substance: WATER
     Indication: SENSATION OF FOREIGN BODY
     Route: 047
     Dates: start: 20180322, end: 20180322

REACTIONS (4)
  - Keratitis [None]
  - Discomfort [None]
  - Erythema [None]
  - Pain [None]

NARRATIVE: CASE EVENT DATE: 20180322
